FAERS Safety Report 11875223 (Version 3)
Quarter: 2016Q1

REPORT INFORMATION
  Report Type: Report from Study
  Country: US (occurrence: US)
  Receive Date: 20151229
  Receipt Date: 20160114
  Transmission Date: 20160526
  Serious: No
  Sender: FDA-Public Use
  Company Number: US-AMGEN-USASP2015137929

PATIENT
  Age: 50 Year
  Sex: Female

DRUGS (1)
  1. ENBREL [Suspect]
     Active Substance: ETANERCEPT
     Indication: RHEUMATOID ARTHRITIS
     Dosage: 50 MG, UNK
     Route: 065
     Dates: start: 201512, end: 201601

REACTIONS (10)
  - Peripheral coldness [Unknown]
  - Injection site reaction [Unknown]
  - Rash papular [Unknown]
  - Hypoaesthesia [Unknown]
  - Injection site erythema [Unknown]
  - Pain [Unknown]
  - Back pain [Unknown]
  - Joint swelling [Unknown]
  - Injection site swelling [Unknown]
  - Injection site pain [Unknown]

NARRATIVE: CASE EVENT DATE: 20150105
